FAERS Safety Report 5868490-5 (Version None)
Quarter: 2008Q3

REPORT INFORMATION
  Report Type: 
  Country: None (occurrence: None)
  Receive Date: 20080902
  Receipt Date: 20080902
  Transmission Date: 20090109
  Serious: Yes (Life-Threatening, Hospitalization, Disabling, Other)
  Sender: FDA-Public Use
  Company Number: None

PATIENT
  Sex: Female
  Weight: 90.7194 kg

DRUGS (1)
  1. YASMIN [Suspect]
     Indication: POLYCYSTIC OVARIES
     Dosage: 1 TAB DAILY ONCE A DAY PO
     Route: 048
     Dates: start: 20020101, end: 20070207

REACTIONS (5)
  - COELIAC DISEASE [None]
  - DEEP VEIN THROMBOSIS [None]
  - POSTURAL ORTHOSTATIC TACHYCARDIA SYNDROME [None]
  - PULMONARY EMBOLISM [None]
  - VENOUS THROMBOSIS LIMB [None]
